FAERS Safety Report 16392930 (Version 1)
Quarter: 2019Q2

REPORT INFORMATION
  Report Type: Spontaneous
  Country: US (occurrence: US)
  Receive Date: 20190605
  Receipt Date: 20190605
  Transmission Date: 20190711
  Serious: Yes (Death)
  Sender: FDA-Public Use
  Company Number: US-ASTELLAS-2019US023702

PATIENT
  Age: 59 Year
  Sex: Male

DRUGS (12)
  1. CLOTRIMAZOLE. [Concomitant]
     Active Substance: CLOTRIMAZOLE
     Indication: OFF LABEL USE
     Dosage: UNK UNK, UNKNOWN FREQ.
     Route: 065
  2. FLUOXETINE [Concomitant]
     Active Substance: FLUOXETINE HYDROCHLORIDE
     Indication: OFF LABEL USE
     Dosage: UNK UNK, UNKNOWN FREQ.
     Route: 065
  3. DEXAMETHASONE. [Concomitant]
     Active Substance: DEXAMETHASONE
     Indication: OFF LABEL USE
     Dosage: UNK UNK, UNKNOWN FREQ.
     Route: 065
  4. TARCEVA [Suspect]
     Active Substance: ERLOTINIB HYDROCHLORIDE
     Indication: METASTASES TO CENTRAL NERVOUS SYSTEM
     Route: 048
     Dates: start: 20190417
  5. CRESTOR [Concomitant]
     Active Substance: ROSUVASTATIN CALCIUM
     Indication: OFF LABEL USE
     Dosage: UNK UNK, UNKNOWN FREQ.
     Route: 065
  6. ASPIRIN. [Concomitant]
     Active Substance: ASPIRIN
     Indication: OFF LABEL USE
     Dosage: UNK UNK, UNKNOWN FREQ.
     Route: 065
  7. POTASSIUM [Concomitant]
     Active Substance: POTASSIUM
     Indication: OFF LABEL USE
     Dosage: UNK UNK, UNKNOWN FREQ.
     Route: 065
  8. RANITIDINE. [Concomitant]
     Active Substance: RANITIDINE
     Indication: OFF LABEL USE
     Dosage: UNK UNK, UNKNOWN FREQ.
     Route: 065
  9. TARCEVA [Suspect]
     Active Substance: ERLOTINIB HYDROCHLORIDE
     Indication: OFF LABEL USE
  10. ALLOPURINOL. [Concomitant]
     Active Substance: ALLOPURINOL
     Indication: OFF LABEL USE
     Dosage: UNK UNK, UNKNOWN FREQ.
     Route: 065
  11. COLACE [Concomitant]
     Active Substance: DOCUSATE SODIUM
     Indication: OFF LABEL USE
     Dosage: UNK UNK, UNKNOWN FREQ.
     Route: 065
  12. NORVASC [Concomitant]
     Active Substance: AMLODIPINE BESYLATE
     Indication: OFF LABEL USE
     Dosage: UNK UNK, UNKNOWN FREQ.
     Route: 065

REACTIONS (3)
  - Off label use [Unknown]
  - Intentional product use issue [Unknown]
  - Death [Fatal]

NARRATIVE: CASE EVENT DATE: 20190518
